FAERS Safety Report 7132158-8 (Version None)
Quarter: 2010Q4

REPORT INFORMATION
  Report Type: 
  Country: None (occurrence: None)
  Receive Date: 20101124
  Receipt Date: 20101124
  Transmission Date: 20110411
  Serious: Yes (Other)
  Sender: FDA-Public Use
  Company Number: None

PATIENT

DRUGS (1)
  1. CVS NIGHTIME COLD / FLU RELIEF [Suspect]
     Dates: start: 20101014, end: 20101014

REACTIONS (2)
  - MALAISE [None]
  - PRODUCT QUALITY ISSUE [None]
